FAERS Safety Report 23913652 (Version 1)
Quarter: 2024Q2

REPORT INFORMATION
  Report Type: Spontaneous
  Country: US (occurrence: US)
  Receive Date: 20240529
  Receipt Date: 20240529
  Transmission Date: 20240716
  Serious: No
  Sender: FDA-Public Use
  Company Number: US-PADAGIS-2024PAD00910

PATIENT

DRUGS (1)
  1. MUPIROCIN [Suspect]
     Active Substance: MUPIROCIN
     Indication: Unevaluable event
     Dosage: UNK, (ON THE FOREARM)
     Route: 065
     Dates: start: 20240521

REACTIONS (5)
  - Dyspnoea [Unknown]
  - Hypoaesthesia oral [Unknown]
  - Tongue discomfort [Unknown]
  - Urticaria [Unknown]
  - Product use in unapproved indication [Unknown]

NARRATIVE: CASE EVENT DATE: 20240521
